FAERS Safety Report 6973844-X (Version None)
Quarter: 2010Q3

REPORT INFORMATION
  Report Type: 
  Country: None (occurrence: None)
  Receive Date: 20100909
  Receipt Date: 20100831
  Transmission Date: 20110219
  Serious: Yes (Death, Hospitalization)
  Sender: FDA-Public Use
  Company Number: A0880391A

PATIENT
  Sex: Female

DRUGS (1)
  1. AVANDIA [Suspect]

REACTIONS (6)
  - CEREBROVASCULAR ACCIDENT [None]
  - DEATH [None]
  - FRACTURE [None]
  - NEOPLASM MALIGNANT [None]
  - RENAL FAILURE [None]
  - TOOTH LOSS [None]
